FAERS Safety Report 18726985 (Version 2)
Quarter: 2021Q1

REPORT INFORMATION
  Report Type: Spontaneous
  Country: PT (occurrence: PT)
  Receive Date: 20210112
  Receipt Date: 20210121
  Transmission Date: 20210419
  Serious: Yes (Other)
  Sender: FDA-Public Use
  Company Number: PT-ALKEM LABORATORIES LIMITED-PT-ALKEM-2020-09456

PATIENT
  Age: 43 Year
  Sex: Male

DRUGS (1)
  1. LIDOCAINE. [Suspect]
     Active Substance: LIDOCAINE
     Indication: LOCAL ANAESTHESIA
     Dosage: UNK
     Route: 065

REACTIONS (11)
  - Anaphylactic shock [Unknown]
  - Vomiting [Unknown]
  - Conjunctivitis [Unknown]
  - Dizziness [Unknown]
  - Hypoxia [Unknown]
  - Erythema [Unknown]
  - Dyspnoea [Unknown]
  - Therapeutic product cross-reactivity [Unknown]
  - Cough [Unknown]
  - Hypotension [Unknown]
  - Tachycardia [Unknown]
